FAERS Safety Report 10057033 (Version 1)
Quarter: 2014Q2

REPORT INFORMATION
  Report Type: Spontaneous
  Country: TR (occurrence: TR)
  Receive Date: 20140403
  Receipt Date: 20140403
  Transmission Date: 20141212
  Serious: Yes (Life-Threatening)
  Sender: FDA-Public Use
  Company Number: TR-BANPHARM-20142488

PATIENT
  Age: 2 Day
  Sex: Male
  Weight: 1.35 kg

DRUGS (5)
  1. IBUPROFEN UNKNOWN PRODUCT [Suspect]
     Route: 042
  2. AMPICILLIN [Concomitant]
  3. NETILMICIN [Concomitant]
  4. FLUCONASOLE [Concomitant]
  5. CALCIUM [Concomitant]

REACTIONS (6)
  - Pallor [Recovered/Resolved]
  - Hypotonia neonatal [Recovered/Resolved]
  - Tachycardia [Recovered/Resolved]
  - Gastric haemorrhage [Recovered/Resolved]
  - Haematochezia [Recovered/Resolved]
  - Melaena [Recovered/Resolved]
